FAERS Safety Report 9619147 (Version 3)
Quarter: 2019Q3

REPORT INFORMATION
  Report Type: Spontaneous
  Country: US (occurrence: US)
  Receive Date: 20131014
  Receipt Date: 20190814
  Transmission Date: 20191005
  Serious: Yes (Hospitalization)
  Sender: FDA-Public Use
  Company Number: US-PFIZER INC-2013290874

PATIENT
  Age: 62 Year
  Sex: Female
  Weight: 78 kg

DRUGS (8)
  1. CELEBREX [Suspect]
     Active Substance: CELECOXIB
     Indication: SCOLIOSIS
     Dosage: 200 MG, 1X/DAY
     Route: 048
  2. CELEBREX [Suspect]
     Active Substance: CELECOXIB
     Indication: ARTHRITIS
     Dosage: 40 MG, 1X/DAY
     Route: 048
  3. CELEBREX [Suspect]
     Active Substance: CELECOXIB
     Indication: SPINAL OSTEOARTHRITIS
  4. KLONOPIN [Concomitant]
     Active Substance: CLONAZEPAM
     Indication: PSYCHIATRIC SYMPTOM
     Dosage: 1 MG, 3X/DAY
     Dates: start: 1996
  5. CELEBREX [Suspect]
     Active Substance: CELECOXIB
     Indication: CYST
     Dosage: 200 MG, 1X/DAY
     Dates: start: 2000
  6. CELEBREX [Suspect]
     Active Substance: CELECOXIB
     Indication: NERVE COMPRESSION
  7. DESYREL [Concomitant]
     Active Substance: TRAZODONE HYDROCHLORIDE
     Indication: PSYCHIATRIC SYMPTOM
     Dosage: 100MG IN MORNING AND 200MG AT NIGHT
     Dates: start: 1996
  8. CELEBREX [Suspect]
     Active Substance: CELECOXIB
     Indication: BACK PAIN

REACTIONS (5)
  - Abdominal pain [Recovered/Resolved]
  - Appendix disorder [Recovered/Resolved]
  - Loss of consciousness [Recovered/Resolved]
  - Gastrointestinal disorder [Recovered/Resolved]
  - Hernia [Recovered/Resolved]

NARRATIVE: CASE EVENT DATE: 20130118
